FAERS Safety Report 15707246 (Version 1)
Quarter: 2018Q4

REPORT INFORMATION
  Report Type: Other
  Country: GB (occurrence: GB)
  Receive Date: 20181210
  Receipt Date: 20181210
  Transmission Date: 20190205
  Serious: Yes (Death)
  Sender: FDA-Public Use
  Company Number: GB-WELLSTAT THERAPEUTICS CORPORATION-2059966

PATIENT
  Age: 62 Year
  Sex: Female
  Weight: 67 kg

DRUGS (2)
  1. VISTOGARD [Suspect]
     Active Substance: URIDINE TRIACETATE
     Indication: CHEMOTHERAPY TOXICITY ATTENUATION
     Route: 048
     Dates: start: 20181122, end: 20181126
  2. CAPECITABINE. [Concomitant]
     Active Substance: CAPECITABINE
     Dates: start: 20181108, end: 20181115

REACTIONS (1)
  - Multiple organ dysfunction syndrome [Fatal]
